FAERS Safety Report 5792838-3 (Version None)
Quarter: 2008Q2

REPORT INFORMATION
  Report Type: 
  Country: None (occurrence: None)
  Receive Date: 20080627
  Receipt Date: 20080623
  Transmission Date: 20081010
  Serious: Yes (Hospitalization, Other)
  Sender: FDA-Public Use
  Company Number: GB-RANBAXY-2008RR-16070

PATIENT

DRUGS (10)
  1. FLUCONAZOLE 100MG CAPSULES [Suspect]
  2. SIMVASTATIN 10MG TABLETS [Suspect]
  3. GOSERELIN [Concomitant]
  4. INSULIN [Concomitant]
     Indication: DIABETES MELLITUS
  5. LISINOPRIL [Concomitant]
     Indication: HYPERTENSION
  6. MOMETASONE FUROATE [Concomitant]
  7. TERAZOSIN HCL [Concomitant]
  8. THIAMINE [Concomitant]
  9. TOLTERODINE TARTRATE [Concomitant]
  10. FOLATE SODIUM [Concomitant]

REACTIONS (10)
  - BLOOD CREATINE PHOSPHOKINASE INCREASED [None]
  - DRUG INTERACTION [None]
  - HEMIPARESIS [None]
  - MASTICATION DISORDER [None]
  - MYOGLOBINURIA [None]
  - NAUSEA [None]
  - RENAL FAILURE ACUTE [None]
  - RHABDOMYOLYSIS [None]
  - SPEECH DISORDER [None]
  - VOMITING [None]
